FAERS Safety Report 5808544-2 (Version None)
Quarter: 2008Q3

REPORT INFORMATION
  Report Type: 
  Country: None (occurrence: None)
  Receive Date: 20080709
  Receipt Date: 20080709
  Transmission Date: 20090109
  Serious: Yes (Life-Threatening, Hospitalization)
  Sender: FDA-Public Use
  Company Number: None

PATIENT
  Age: 68 Year
  Sex: Male

DRUGS (1)
  1. LISINOPRIL [Suspect]
     Indication: MYOCARDIAL INFARCTION
     Dosage: 2.5 MG EVERY DAY PO
     Route: 048
     Dates: start: 20080613, end: 20080630

REACTIONS (3)
  - ACUTE MYOCARDIAL INFARCTION [None]
  - ELECTROCARDIOGRAM CHANGE [None]
  - HYPERKALAEMIA [None]
